FAERS Safety Report 8975652 (Version 1)
Quarter: 2012Q4

REPORT INFORMATION
  Report Type: 
  Country: GB (occurrence: GB)
  Receive Date: 20121219
  Receipt Date: 20121219
  Transmission Date: 20130627
  Serious: Yes (Other)
  Sender: FDA-Public Use
  Company Number: GB-ROCHE-1170390

PATIENT
  Age: 60 Year
  Sex: Female

DRUGS (1)
  1. ROACTEMRA [Suspect]
     Indication: PRODUCT USED FOR UNKNOWN INDICATION
     Route: 065

REACTIONS (5)
  - Blood test abnormal [Unknown]
  - Headache [Unknown]
  - Rash [Unknown]
  - Influenza like illness [Unknown]
  - Vaginal discharge [Unknown]
